FAERS Safety Report 4423063-6 (Version None)
Quarter: 2004Q3

REPORT INFORMATION
  Report Type: 
  Country: None (occurrence: None)
  Receive Date: 20040806
  Receipt Date: 20040721
  Transmission Date: 20050211
  Serious: Yes (Death, Life-Threatening, Other)
  Sender: FDA-Public Use
  Company Number: USA040773248

PATIENT
  Age: 27 Year
  Sex: Male

DRUGS (3)
  1. PROZAC [Suspect]
     Indication: DEPRESSION
     Dates: start: 20011201, end: 20020101
  2. REMERON [Concomitant]
  3. TYLENOL [Concomitant]

REACTIONS (4)
  - COMPLETED SUICIDE [None]
  - MULTIPLE DRUG OVERDOSE INTENTIONAL [None]
  - NERVOUSNESS [None]
  - TREMOR [None]
